FAERS Safety Report 5451657-8 (Version None)
Quarter: 2007Q3

REPORT INFORMATION
  Report Type: 
  Country: None (occurrence: None)
  Receive Date: 20070913
  Receipt Date: 20070903
  Transmission Date: 20080115
  Serious: Yes (Other)
  Sender: FDA-Public Use
  Company Number: GB-PFIZER INC-2007074973

PATIENT
  Age: 48 Year
  Sex: Male

DRUGS (1)
  1. NICOTINE [Suspect]
     Indication: EX-SMOKER
     Route: 055

REACTIONS (2)
  - DEPENDENCE [None]
  - INCORRECT DRUG ADMINISTRATION DURATION [None]
